FAERS Safety Report 9702356 (Version 2)
Quarter: 2014Q1

REPORT INFORMATION
  Report Type: Spontaneous
  Country: NO (occurrence: NO)
  Receive Date: 20131121
  Receipt Date: 20140109
  Transmission Date: 20141002
  Serious: Yes (Hospitalization, Other)
  Sender: FDA-Public Use
  Company Number: NO-TEVA-444975ISR

PATIENT
  Age: 70 Year
  Sex: Male
  Weight: 66 kg

DRUGS (8)
  1. METHOTREXATE [Suspect]
     Indication: RHEUMATOID ARTHRITIS
     Dosage: DOSAGE FORM: UNSPECIFIED, AUTUMN 2012, USED FOR SEVERAL YEARS, STOPPED A YEAR AGO
     Route: 065
     Dates: start: 201209, end: 2013
  2. REMICADE [Suspect]
     Indication: CROHN^S DISEASE
     Dosage: LYOPHILIZED POWDER. REPORTED AS 5 MG/ML, TOTAL DOSE 350 MG
     Route: 042
     Dates: start: 2004
  3. REMICADE [Suspect]
     Indication: RHEUMATOID ARTHRITIS
  4. CALCIUM CARBONATE [Concomitant]
     Indication: NEPHROPATHY
     Dosage: DOSAGE FORM: UNSPECIFIED, USED FOR A COUPLE OF YEARS
     Route: 065
  5. ALBYL [Concomitant]
     Indication: HYPERTENSION
     Dosage: DOSAGE FORM: UNSPECIFIED
     Route: 065
  6. ADALAT OROS [Concomitant]
     Indication: HYPERTENSION
     Dosage: DOSAGE FORM: UNSPECIFIED
     Route: 065
  7. VALSARTAN [Concomitant]
     Indication: HYPERTENSION
     Dosage: DOSAGE FORM: UNSPECIFIED
     Route: 065
  8. CARDURAN [Concomitant]
     Indication: HYPERTENSION
     Dosage: DOSAGE FORM: UNSPECIFIED
     Route: 065

REACTIONS (2)
  - Prostate cancer [Recovering/Resolving]
  - Dysplastic naevus [Recovered/Resolved]
